FAERS Safety Report 7682776-3 (Version None)
Quarter: 2011Q3

REPORT INFORMATION
  Report Type: 
  Country: None (occurrence: None)
  Receive Date: 20110815
  Receipt Date: 20110811
  Transmission Date: 20111222
  Serious: Yes (Death)
  Sender: FDA-Public Use
  Company Number: JP-B.I. PHARMACEUTICALS,INC./RIDGEFIELD-2011-BP-18192NB

PATIENT
  Age: 90 Year
  Sex: Female
  Weight: 34 kg

DRUGS (11)
  1. LASIX [Concomitant]
     Route: 048
     Dates: start: 20110712
  2. CARVEDILOL [Concomitant]
     Route: 048
     Dates: start: 20110627, end: 20110720
  3. MUCOSOLVAN [Concomitant]
     Route: 065
  4. LEVOFLOXACIN [Concomitant]
     Route: 048
     Dates: start: 20110720
  5. SUNRYTHM [Concomitant]
     Route: 048
     Dates: start: 20110101
  6. ASPIRIN [Concomitant]
     Route: 048
     Dates: start: 20110101
  7. ALDACTONE [Concomitant]
     Route: 048
     Dates: start: 20110101
  8. GASMOTIN [Concomitant]
     Route: 048
     Dates: start: 20110701
  9. PRADAXA [Suspect]
     Dosage: 220 MG
     Route: 048
     Dates: start: 20110715, end: 20110720
  10. OMEPRAZOLE [Concomitant]
     Route: 048
     Dates: start: 20110701
  11. UNKNOWN ANTIPYRETIC [Concomitant]
     Indication: ANTIPYRESIS
     Route: 048

REACTIONS (2)
  - PNEUMONIA [None]
  - CARDIAC FAILURE [None]
